FAERS Safety Report 24443912 (Version 2)
Quarter: 2024Q4

REPORT INFORMATION
  Report Type: Spontaneous
  Country: CH (occurrence: CH)
  Receive Date: 20241016
  Receipt Date: 20241017
  Transmission Date: 20250114
  Serious: No
  Sender: ROCHE
  Company Number: CH-ROCHE-2580278

PATIENT
  Age: 52 Year

DRUGS (2)
  1. MABTHERA [Suspect]
     Active Substance: RITUXIMAB
     Indication: Polymyositis
     Route: 065
  2. MABTHERA [Suspect]
     Active Substance: RITUXIMAB
     Indication: Tolosa-Hunt syndrome

REACTIONS (2)
  - No adverse event [Unknown]
  - Intentional product use issue [Unknown]
